FAERS Safety Report 6544222-2 (Version None)
Quarter: 2010Q1

REPORT INFORMATION
  Report Type: 
  Country: None (occurrence: None)
  Receive Date: 20100119
  Receipt Date: 20100119
  Transmission Date: 20100710
  Serious: Yes (Life-Threatening, Hospitalization)
  Sender: FDA-Public Use
  Company Number: None

PATIENT
  Age: 68 Year
  Sex: Male
  Weight: 115.21 kg

DRUGS (2)
  1. MIDAZOLAM HCL [Suspect]
     Indication: ENDOTRACHEAL INTUBATION
     Dosage: 4 MG ONCE IV
     Route: 042
     Dates: start: 20090927, end: 20090927
  2. ETOMIDATE [Suspect]
     Indication: ENDOTRACHEAL INTUBATION
     Dosage: 20 MG ONCE IV
     Route: 042
     Dates: start: 20090927, end: 20090927

REACTIONS (5)
  - ANAPHYLACTIC SHOCK [None]
  - HYPOTENSION [None]
  - LATEX ALLERGY [None]
  - PRURITUS [None]
  - URTICARIA [None]
